FAERS Safety Report 6329379-0 (Version None)
Quarter: 2009Q3

REPORT INFORMATION
  Report Type: 
  Country: None (occurrence: None)
  Receive Date: 20090824
  Receipt Date: 20090824
  Transmission Date: 20100115
  Serious: Yes (Other)
  Sender: FDA-Public Use
  Company Number: None

PATIENT
  Age: 51 Year
  Sex: Female
  Weight: 72.5755 kg

DRUGS (4)
  1. ENBREL [Suspect]
     Indication: RHEUMATOID ARTHRITIS
     Dosage: 50 MG WEEKLY ID
     Route: 026
     Dates: start: 20080901, end: 20090822
  2. VITAMIN B-12 [Concomitant]
  3. CATAFLAM [Concomitant]
  4. VITAMIN BENEFIBER [Concomitant]

REACTIONS (4)
  - DYSPEPSIA [None]
  - MICTURITION URGENCY [None]
  - NERVOUS SYSTEM DISORDER [None]
  - PARAESTHESIA [None]
